FAERS Safety Report 18710879 (Version 2)
Quarter: 2021Q1

REPORT INFORMATION
  Report Type: Spontaneous
  Country: MX (occurrence: MX)
  Receive Date: 20210107
  Receipt Date: 20210118
  Transmission Date: 20210419
  Serious: Yes (Hospitalization, Disabling, Other)
  Sender: FDA-Public Use
  Company Number: NVSC2020MX347170

PATIENT
  Age: 49 Year
  Sex: Female

DRUGS (1)
  1. GLIVEC [Suspect]
     Active Substance: IMATINIB MESYLATE
     Indication: CHRONIC MYELOID LEUKAEMIA
     Dosage: 600 MG, QD ((6X100MG), DAILY))
     Route: 048
     Dates: start: 20111005

REACTIONS (4)
  - Pyrexia [Unknown]
  - Pneumonia [Recovered/Resolved]
  - Headache [Unknown]
  - COVID-19 [Recovered/Resolved]

NARRATIVE: CASE EVENT DATE: 202007
